FAERS Safety Report 15351904 (Version 1)
Quarter: 2018Q3

REPORT INFORMATION
  Report Type: Spontaneous
  Country: US (occurrence: US)
  Receive Date: 20180829
  Receipt Date: 20180829
  Transmission Date: 20181010
  Serious: No
  Sender: FDA-Public Use
  Company Number: None

PATIENT
  Age: 75 Year
  Sex: Male

DRUGS (2)
  1. MYCOPHENOLATE [Concomitant]
     Active Substance: MYCOPHENOLIC ACID
  2. TACROLIMUS CAP [Suspect]
     Active Substance: TACROLIMUS
     Dates: start: 20180716

REACTIONS (1)
  - Tremor [None]

NARRATIVE: CASE EVENT DATE: 20180829
